FAERS Safety Report 8958125 (Version 1)
Quarter: 2012Q4

REPORT INFORMATION
  Report Type: 
  Country: US (occurrence: US)
  Receive Date: 20121211
  Receipt Date: 20121211
  Transmission Date: 20130627
  Serious: Yes (Other)
  Sender: FDA-Public Use
  Company Number: US-PFIZER INC-2012307798

PATIENT
  Age: 39 Year
  Sex: Male
  Weight: 90.7 kg

DRUGS (8)
  1. PREPARATION H [Suspect]
     Indication: ANORECTAL DISORDER
     Dosage: UNK
  2. PREPARATION H [Suspect]
     Indication: PERIANAL ITCHING
  3. PREPARATION H [Suspect]
     Indication: PERIANAL PAIN
  4. PREPARATION H [Suspect]
     Indication: ERYTHEMA
  5. PREPARATION H [Suspect]
     Indication: ANORECTAL DISORDER
     Dosage: UNK, 2x/day
     Dates: start: 201210
  6. PREPARATION H [Suspect]
     Indication: ANAL PRURITUS
  7. PREPARATION H [Suspect]
     Indication: PERIANAL PAIN
  8. PREPARATION H [Suspect]
     Indication: ERYTHEMA

REACTIONS (3)
  - Haematochezia [Unknown]
  - Drug ineffective [Unknown]
  - Skin haemorrhage [Unknown]
